FAERS Safety Report 21483048 (Version 2)
Quarter: 2022Q4

REPORT INFORMATION
  Report Type: Spontaneous
  Country: US (occurrence: US)
  Receive Date: 20221020
  Receipt Date: 20221020
  Transmission Date: 20230112
  Serious: No
  Sender: FDA-Public Use
  Company Number: US-ALLERGAN-2136058US

PATIENT
  Age: 70 Year
  Sex: Female

DRUGS (11)
  1. LINZESS [Suspect]
     Active Substance: LINACLOTIDE
     Indication: Irritable bowel syndrome
     Dosage: 72 ?G, QAM
     Route: 048
     Dates: start: 202109, end: 202110
  2. LINZESS [Suspect]
     Active Substance: LINACLOTIDE
     Indication: Irritable bowel syndrome
     Dosage: 145 ?G (FOR 2 WEEKS)
     Route: 048
     Dates: start: 202110
  3. SOMA [Concomitant]
     Active Substance: CARISOPRODOL
     Indication: Fibromyalgia
     Dosage: UNK
     Dates: start: 1995
  4. ASPIRIN [Concomitant]
     Active Substance: ASPIRIN
     Indication: Angina pectoris
     Dosage: UNK
     Dates: start: 2020
  5. LACTULOSE [Concomitant]
     Active Substance: LACTULOSE
     Indication: Abdominal discomfort
     Dosage: UNK
  6. PLAVIX [Concomitant]
     Active Substance: CLOPIDOGREL BISULFATE
     Indication: Enzyme abnormality
     Dosage: UNK
  7. SINGULAIR [Concomitant]
     Active Substance: MONTELUKAST SODIUM
     Indication: Asthma
     Dosage: UNK, START DATE: 30 YEARS AGO
  8. OMEPRAZOLE [Concomitant]
     Active Substance: OMEPRAZOLE
     Indication: Gastrooesophageal reflux disease
     Dosage: UNK, AT LEAST 25 YEARS AGO
  9. ZOCOR [Concomitant]
     Active Substance: SIMVASTATIN
     Indication: Blood cholesterol increased
     Dosage: UNK, START DATE: 25 YEARS AGO
  10. METFORMIN [Concomitant]
     Active Substance: METFORMIN HYDROCHLORIDE
     Indication: Blood cholesterol increased
     Dosage: UNK
  11. ESTROGENS [Concomitant]
     Active Substance: ESTROGENS
     Indication: Menopause
     Route: 062

REACTIONS (3)
  - Off label use [Unknown]
  - Malaise [Not Recovered/Not Resolved]
  - Drug ineffective for unapproved indication [Unknown]
